FAERS Safety Report 8995119 (Version 4)
Quarter: 2013Q1

REPORT INFORMATION
  Report Type: Spontaneous
  Country: US (occurrence: US)
  Receive Date: 20130102
  Receipt Date: 20130312
  Transmission Date: 20140127
  Serious: Yes (Hospitalization)
  Sender: FDA-Public Use
  Company Number: US-GILEAD-2012-0067091

PATIENT
  Sex: Female

DRUGS (2)
  1. LETAIRIS [Suspect]
     Indication: CONGENITAL PULMONARY HYPERTENSION
     Dosage: 10 MG, QD
     Route: 048
     Dates: start: 20121205
  2. TYVASO [Suspect]

REACTIONS (4)
  - Pyrexia [Unknown]
  - Platelet count decreased [Unknown]
  - Malaise [Unknown]
  - Dyspnoea [Unknown]
